FAERS Safety Report 15992581 (Version 11)
Quarter: 2019Q4

REPORT INFORMATION
  Report Type: Report from Study
  Country: US (occurrence: US)
  Receive Date: 20190221
  Receipt Date: 20191212
  Transmission Date: 20200122
  Serious: Yes (Death, Hospitalization)
  Sender: FDA-Public Use
  Company Number: US-ACTELION-A-NJ2018-182697

PATIENT
  Sex: Female
  Weight: 95.69 kg

DRUGS (8)
  1. VELETRI [Suspect]
     Active Substance: EPOPROSTENOL
     Dosage: 20 NG/KG, PER MIN
     Route: 042
  2. VELETRI [Suspect]
     Active Substance: EPOPROSTENOL
     Dosage: 18 UNK
     Route: 042
  3. ADEMPAS [Concomitant]
     Active Substance: RIOCIGUAT
  4. ORENITRAM [Concomitant]
     Active Substance: TREPROSTINIL
  5. ELIQUIS [Concomitant]
     Active Substance: APIXABAN
  6. VELETRI [Suspect]
     Active Substance: EPOPROSTENOL
     Indication: PULMONARY HYPERTENSION
     Dosage: 19 NG/KG, PER MIN
     Route: 042
  7. VELETRI [Suspect]
     Active Substance: EPOPROSTENOL
     Dosage: 29 NG/KG, PER MIN
     Route: 042
  8. VELETRI [Suspect]
     Active Substance: EPOPROSTENOL
     Dosage: UNK
     Route: 042

REACTIONS (20)
  - Hospitalisation [Unknown]
  - General physical health deterioration [Unknown]
  - Aphonia [Unknown]
  - Diarrhoea [Unknown]
  - Ascites [Unknown]
  - Oxygen saturation decreased [Unknown]
  - Sinusitis [Unknown]
  - Fluid overload [Unknown]
  - Abdominal distension [Unknown]
  - Upper respiratory tract infection [Unknown]
  - Viral infection [Unknown]
  - Erythema [Unknown]
  - Condition aggravated [Unknown]
  - Peripheral swelling [Unknown]
  - Dyspnoea [Unknown]
  - Parainfluenzae virus infection [Fatal]
  - Pneumonia [Fatal]
  - Pain in jaw [Unknown]
  - Fluid retention [Unknown]
  - Drug ineffective [Unknown]
